FAERS Safety Report 5284033-1 (Version None)
Quarter: 2007Q2

REPORT INFORMATION
  Report Type: 
  Country: None (occurrence: None)
  Receive Date: 20070402
  Receipt Date: 20070321
  Transmission Date: 20071010
  Serious: Yes (Other)
  Sender: FDA-Public Use
  Company Number: US-PFIZER INC-2007023671

PATIENT
  Sex: Male
  Weight: 67 kg

DRUGS (1)
  1. DOSTINEX [Suspect]
     Indication: HYPERPROLACTINAEMIA

REACTIONS (3)
  - CONVULSION [None]
  - DELIRIUM [None]
  - HYPOTHYROIDISM [None]
